FAERS Safety Report 7759793-8 (Version None)
Quarter: 2011Q3

REPORT INFORMATION
  Report Type: 
  Country: None (occurrence: None)
  Receive Date: 20110919
  Receipt Date: 20110919
  Transmission Date: 20111222
  Serious: Yes (Hospitalization)
  Sender: FDA-Public Use
  Company Number: None

PATIENT
  Age: 25 Year
  Sex: Male
  Weight: 81.646 kg

DRUGS (5)
  1. ASPIRIN [Concomitant]
  2. LISINOPRIL [Concomitant]
  3. RISPERIDONE [Suspect]
     Indication: PSYCHOTIC DISORDER
     Dosage: 1 MG
     Route: 046
     Dates: start: 20110915, end: 20110915
  4. HYDROCHLOROTHIAZIDE [Concomitant]
  5. SERTRALINE HYDROCHLORIDE [Concomitant]

REACTIONS (12)
  - UNRESPONSIVE TO STIMULI [None]
  - FALL [None]
  - HYPOPNOEA [None]
  - DISORIENTATION [None]
  - FEELING COLD [None]
  - DRUG DOSE OMISSION [None]
  - TACHYCARDIA [None]
  - POOR PERIPHERAL CIRCULATION [None]
  - REFUSAL OF TREATMENT BY PATIENT [None]
  - TREATMENT NONCOMPLIANCE [None]
  - POSTURE ABNORMAL [None]
  - CYANOSIS [None]
